FAERS Safety Report 20491040 (Version 5)
Quarter: 2022Q2

REPORT INFORMATION
  Report Type: Spontaneous
  Country: US (occurrence: None)
  Receive Date: 20220218
  Receipt Date: 20220419
  Transmission Date: 20220721
  Serious: No
  Sender: FDA-Public Use
  Company Number: 2022A038870

PATIENT
  Sex: Female
  Weight: 99.8 kg

DRUGS (2)
  1. FASENRA [Suspect]
     Active Substance: BENRALIZUMAB
     Indication: Asthma
     Route: 058
  2. FASENRA [Suspect]
     Active Substance: BENRALIZUMAB
     Route: 058

REACTIONS (11)
  - Limb discomfort [Unknown]
  - Nasopharyngitis [Unknown]
  - Infection [Unknown]
  - Contusion [Unknown]
  - Exercise tolerance decreased [Unknown]
  - Movement disorder [Unknown]
  - Hypersensitivity [Unknown]
  - Injection site mass [Unknown]
  - Injury associated with device [Unknown]
  - Device physical property issue [Unknown]
  - Device malfunction [Unknown]
